FAERS Safety Report 10046380 (Version 1)
Quarter: 2014Q1

REPORT INFORMATION
  Report Type: Spontaneous
  Country: US (occurrence: US)
  Receive Date: 20140331
  Receipt Date: 20140331
  Transmission Date: 20141002
  Serious: No
  Sender: FDA-Public Use
  Company Number: US-BIOGENIDEC-2014BI027448

PATIENT
  Age: 61 Year
  Sex: Female

DRUGS (8)
  1. TECFIDERA [Suspect]
     Indication: MULTIPLE SCLEROSIS
     Route: 048
  2. AMANTADINE HCL [Concomitant]
     Indication: PRODUCT USED FOR UNKNOWN INDICATION
  3. BACLOFEN [Concomitant]
     Indication: PRODUCT USED FOR UNKNOWN INDICATION
  4. ZOLOFT [Concomitant]
     Indication: PRODUCT USED FOR UNKNOWN INDICATION
  5. ASPIRIN EC LO-DOSE [Concomitant]
  6. IBUPROFEN [Concomitant]
  7. PEPCID [Concomitant]
  8. VITAMIN D [Concomitant]

REACTIONS (3)
  - Alopecia [Unknown]
  - Abdominal distension [Unknown]
  - Abdominal pain upper [Unknown]
